FAERS Safety Report 9236014 (Version 2)
Quarter: 2013Q2

REPORT INFORMATION
  Report Type: Spontaneous
  Country: BR (occurrence: None)
  Receive Date: 20130409
  Receipt Date: 20130411
  Transmission Date: 20140414
  Serious: Yes (Other)
  Sender: FDA-Public Use
  Company Number: 2013035224

PATIENT
  Age: 3 Month
  Sex: Female

DRUGS (3)
  1. IVIG [Suspect]
     Indication: KAWASAKI^S DISEASE
     Dosage: TOTAL, IV  (NOT OTHERWISE SPECIFIED)
     Route: 042
  2. ACETYLSALICYLIC ACID (ACETYLSALICYLIC ACID) [Concomitant]
  3. ENOXAPARIN [Concomitant]

REACTIONS (6)
  - Inflammation [None]
  - Pyrexia [None]
  - Pericardial effusion [None]
  - Mitral valve incompetence [None]
  - Coronary artery dilatation [None]
  - Drug ineffective [None]
